FAERS Safety Report 9642925 (Version 3)
Quarter: 2013Q4

REPORT INFORMATION
  Report Type: Spontaneous
  Country: CL (occurrence: CL)
  Receive Date: 20131024
  Receipt Date: 20131107
  Transmission Date: 20140711
  Serious: No
  Sender: FDA-Public Use
  Company Number: CL-009507513-1310CHL009020

PATIENT
  Age: 58 Year
  Sex: Female

DRUGS (2)
  1. FOSAMAX PLUS [Suspect]
     Indication: OSTEOPOROSIS
     Dosage: STRENGTH: 70 MG, 140 MCG, 1 TABLET WITH BREAKFAST
     Route: 048
     Dates: start: 20131014, end: 20131014
  2. ESOMEPRAZOLE [Concomitant]
     Route: 048

REACTIONS (4)
  - Blood pressure decreased [Unknown]
  - Vomiting [Recovered/Resolved]
  - Diarrhoea [Unknown]
  - Gastritis [Not Recovered/Not Resolved]
